FAERS Safety Report 7908940-3 (Version None)
Quarter: 2011Q4

REPORT INFORMATION
  Report Type: 
  Country: None (occurrence: None)
  Receive Date: 20111111
  Receipt Date: 20111109
  Transmission Date: 20120403
  Serious: Yes (Life-Threatening, Hospitalization)
  Sender: FDA-Public Use
  Company Number: DE-B.I. PHARMACEUTICALS,INC./RIDGEFIELD-2011-DE-06325DE

PATIENT
  Age: 65 Year
  Sex: Male

DRUGS (1)
  1. PRADAXA [Suspect]
     Indication: ATRIAL FIBRILLATION
     Dates: start: 20110719, end: 20110826

REACTIONS (7)
  - SEPSIS [None]
  - DEHYDRATION [None]
  - GASTROINTESTINAL INFECTION [None]
  - RENAL FAILURE [None]
  - HAEMORRHAGE [None]
  - INTESTINAL ISCHAEMIA [None]
  - INFECTIOUS PERITONITIS [None]
